FAERS Safety Report 7623307-3 (Version None)
Quarter: 2011Q3

REPORT INFORMATION
  Report Type: 
  Country: None (occurrence: None)
  Receive Date: 20110720
  Receipt Date: 20110718
  Transmission Date: 20111222
  Serious: Yes (Other)
  Sender: FDA-Public Use
  Company Number: CZ-ROCHE-772567

PATIENT
  Sex: Female

DRUGS (4)
  1. FLUOROURACIL [Suspect]
     Route: 042
     Dates: start: 20110221, end: 20110404
  2. RHUPH20/TRASTUZUMAB [Suspect]
     Route: 058
     Dates: start: 20101129, end: 20110404
  3. EPIRUBICIN [Suspect]
     Route: 042
     Dates: start: 20110221, end: 20110404
  4. CYCLOPHOSPHAMIDE [Suspect]
     Route: 042
     Dates: start: 20110221, end: 20110404

REACTIONS (1)
  - ABORTION SPONTANEOUS [None]
